FAERS Safety Report 7036042-X (Version None)
Quarter: 2010Q4

REPORT INFORMATION
  Report Type: 
  Country: None (occurrence: None)
  Receive Date: 20101007
  Receipt Date: 20101007
  Transmission Date: 20110411
  Serious: Yes (Hospitalization)
  Sender: FDA-Public Use
  Company Number: None

PATIENT
  Sex: Male
  Weight: 60.8 kg

DRUGS (11)
  1. GEMCITABINE 800 MG/M2 [Suspect]
     Indication: PANCREATIC CARCINOMA
     Dosage: 1440 MG Q 2 WEEKS IV
     Route: 042
     Dates: start: 20100909, end: 20100923
  2. OXALIPLATIN [Suspect]
     Indication: PANCREATIC CARCINOMA
     Dosage: 85 MG Q 2 WEEKS IV
     Route: 042
     Dates: start: 20100910, end: 20100924
  3. ERLOTINIB 75 MG [Suspect]
     Indication: PANCREATIC CARCINOMA
     Dosage: 75 MG DAY 3-8 AND 17-22 PO
     Route: 048
     Dates: start: 20100911, end: 20100916
  4. ERLOTINIB 75 MG [Suspect]
     Indication: PANCREATIC CARCINOMA
     Dosage: 75 MG DAY 3-8 AND 17-22 PO
     Route: 048
     Dates: start: 20100925, end: 20100930
  5. OXYCODONE HCL EXTENDED-RELEASE [Concomitant]
  6. CARVEDILOL [Concomitant]
  7. MULTI-VITAMIN [Concomitant]
  8. COQ10 [Concomitant]
  9. MEGACE [Concomitant]
  10. LORTAB [Concomitant]
  11. IMODIUM [Concomitant]

REACTIONS (4)
  - DIZZINESS [None]
  - NAUSEA [None]
  - REFUSAL OF TREATMENT BY PATIENT [None]
  - SYNCOPE [None]
